FAERS Safety Report 9291367 (Version 1)
Quarter: 2013Q2

REPORT INFORMATION
  Report Type: Spontaneous
  Country: US (occurrence: US)
  Receive Date: 20130515
  Receipt Date: 20130515
  Transmission Date: 20140414
  Serious: Yes (Other)
  Sender: FDA-Public Use
  Company Number: US-SHIRE-ALL1-2013-02157

PATIENT
  Age: 8 Year
  Sex: Male

DRUGS (2)
  1. VYVANSE [Suspect]
     Indication: ATTENTION DEFICIT/HYPERACTIVITY DISORDER
     Dosage: 30 MG, UNKNOWN
     Route: 048
  2. VYVANSE [Suspect]
     Dosage: 20 MG, 1X/DAY:QD
     Route: 048
     Dates: start: 20120316

REACTIONS (2)
  - Haematuria [Recovering/Resolving]
  - Gastroenteritis [Unknown]
